FAERS Safety Report 7747750-7 (Version None)
Quarter: 2011Q3

REPORT INFORMATION
  Report Type: 
  Country: None (occurrence: None)
  Receive Date: 20110913
  Receipt Date: 20110830
  Transmission Date: 20111222
  Serious: Yes (Hospitalization, Other)
  Sender: FDA-Public Use
  Company Number: JP-CEPHALON-2011002422

PATIENT
  Sex: Female
  Weight: 43 kg

DRUGS (7)
  1. TREANDA [Suspect]
     Route: 042
     Dates: start: 20110216, end: 20110216
  2. AMLODIPINE BESYLATE [Concomitant]
  3. TREANDA [Suspect]
     Indication: B-CELL LYMPHOMA
     Route: 042
     Dates: start: 20110126, end: 20110127
  4. FAMOTIDINE [Concomitant]
  5. GRANISETRON HYDROCHLORIDE [Concomitant]
     Dates: start: 20110126, end: 20110216
  6. ITRACONAZOLE [Concomitant]
  7. CEFEPIME HYDROCHLORIDE [Concomitant]
     Dates: start: 20110217, end: 20110220

REACTIONS (4)
  - WHITE BLOOD CELL COUNT DECREASED [None]
  - NAUSEA [None]
  - CYSTITIS [None]
  - LYMPHOCYTE COUNT DECREASED [None]
